FAERS Safety Report 4478668-3 (Version None)
Quarter: 2004Q4

REPORT INFORMATION
  Report Type: 
  Country: None (occurrence: None)
  Receive Date: 20040923
  Receipt Date: 20040602
  Transmission Date: 20050328
  Serious: No
  Sender: FDA-Public Use
  Company Number: USA040669145

PATIENT
  Sex: Female

DRUGS (3)
  1. FORTEO [Suspect]
  2. FOSAMAX [Concomitant]
  3. ACTONEL [Concomitant]

REACTIONS (1)
  - MOBILITY DECREASED [None]
